FAERS Safety Report 8129846-3 (Version None)
Quarter: 2012Q1

REPORT INFORMATION
  Report Type: 
  Country: None (occurrence: None)
  Receive Date: 20120210
  Receipt Date: 20120130
  Transmission Date: 20120608
  Serious: Yes (Hospitalization)
  Sender: FDA-Public Use
  Company Number: NL-MEDIMMUNE-MEDI-0014785

PATIENT
  Sex: Male
  Weight: 8.7 kg

DRUGS (1)
  1. SYNAGIS [Suspect]
     Indication: MYOPATHY
     Route: 030
     Dates: end: 20111206

REACTIONS (2)
  - VIRAL INFECTION [None]
  - PNEUMONIA [None]
